FAERS Safety Report 4310570-X (Version None)
Quarter: 2004Q1

REPORT INFORMATION
  Report Type: 
  Country: None (occurrence: None)
  Receive Date: 20040303
  Receipt Date: 20040211
  Transmission Date: 20041129
  Serious: Yes (Other)
  Sender: FDA-Public Use
  Company Number: DE-GLAXOSMITHKLINE-D0043105A

PATIENT
  Age: 46 Year
  Sex: Female
  Weight: 85 kg

DRUGS (2)
  1. QUILONUM RETARD [Suspect]
     Route: 048
  2. TAXILAN [Suspect]
     Route: 048

REACTIONS (3)
  - PANIC REACTION [None]
  - SLUGGISHNESS [None]
  - SOMNOLENCE [None]
